FAERS Safety Report 6733065-2 (Version None)
Quarter: 2010Q2

REPORT INFORMATION
  Report Type: 
  Country: None (occurrence: None)
  Receive Date: 20100518
  Receipt Date: 20100513
  Transmission Date: 20101027
  Serious: Yes (Hospitalization)
  Sender: FDA-Public Use
  Company Number: SP02921

PATIENT
  Age: 18 Year
  Sex: Male

DRUGS (1)
  1. COLAZAL (750 MILLIGRAM, CAPSULE) [Suspect]
     Indication: CROHN'S DISEASE
     Dosage: 4.5 GM (4.5 GM, 1 IN 1 D), ORAL
     Route: 048
     Dates: start: 20091216, end: 20100124

REACTIONS (1)
  - PANCREATITIS [None]
